FAERS Safety Report 21892740 (Version 2)
Quarter: 2023Q1

REPORT INFORMATION
  Report Type: Spontaneous
  Country: AT (occurrence: AT)
  Receive Date: 20230120
  Receipt Date: 20230207
  Transmission Date: 20230417
  Serious: Yes (Other)
  Sender: FDA-Public Use
  Company Number: AT-GILEAD-2023-0613007

PATIENT
  Age: 45 Year
  Sex: Female

DRUGS (8)
  1. TRODELVY [Suspect]
     Active Substance: SACITUZUMAB GOVITECAN-HZIY
     Indication: Breast cancer female
     Dosage: 10 MG/KG, Q3WK D1/D8
     Route: 042
     Dates: start: 202203, end: 202212
  2. TRODELVY [Suspect]
     Active Substance: SACITUZUMAB GOVITECAN-HZIY
     Dosage: UNK
     Route: 042
     Dates: start: 202301
  3. CITALOPRAM [Concomitant]
     Active Substance: CITALOPRAM HYDROBROMIDE
  4. PACLITAXEL [Concomitant]
     Active Substance: PACLITAXEL
  5. OXYGEN [Concomitant]
     Active Substance: OXYGEN
  6. HYDROMORPHONE [Concomitant]
     Active Substance: HYDROMORPHONE
  7. FILGRASTIM [Concomitant]
     Active Substance: FILGRASTIM
  8. GRANULOCYTE COLONY-STIMULATING FACTOR NOS [Concomitant]
     Active Substance: GRANULOCYTE COLONY-STIMULATING FACTOR NOS

REACTIONS (16)
  - Bronchitis bacterial [Unknown]
  - Pharyngitis [Unknown]
  - Inappropriate schedule of product administration [Unknown]
  - Inappropriate schedule of product administration [Unknown]
  - Gastroenteritis [Unknown]
  - Sinusitis [Unknown]
  - Sinusitis [Unknown]
  - Oral herpes [Unknown]
  - Oral herpes [Unknown]
  - Cough [Unknown]
  - Nausea [Unknown]
  - Nausea [Unknown]
  - Diarrhoea [Unknown]
  - Fatigue [Unknown]
  - Alopecia [Unknown]
  - Diarrhoea [Unknown]

NARRATIVE: CASE EVENT DATE: 20220301
